FAERS Safety Report 22638315 (Version 1)
Quarter: 2023Q2

REPORT INFORMATION
  Report Type: Report from Study
  Country: GB (occurrence: GB)
  Receive Date: 20230626
  Receipt Date: 20230626
  Transmission Date: 20230722
  Serious: Yes (Other)
  Sender: FDA-Public Use
  Company Number: GB-ABBVIE-4264690

PATIENT
  Age: 62 Year
  Sex: Male
  Weight: 94.7 kg

DRUGS (20)
  1. UPADACITINIB [Suspect]
     Active Substance: UPADACITINIB
     Indication: Dermatitis atopic
     Route: 048
     Dates: start: 20190814, end: 20191210
  2. UPADACITINIB [Suspect]
     Active Substance: UPADACITINIB
     Indication: Dermatitis atopic
     Route: 048
     Dates: start: 20191211, end: 20221121
  3. UPADACITINIB [Suspect]
     Active Substance: UPADACITINIB
     Indication: Dermatitis atopic
     Route: 048
     Dates: start: 20221123
  4. HYDROCORTISONE [Suspect]
     Active Substance: HYDROCORTISONE
     Indication: Dermatitis atopic
     Route: 061
     Dates: start: 20190814, end: 20220414
  5. HYDROCORTISONE [Suspect]
     Active Substance: HYDROCORTISONE
     Indication: Dermatitis atopic
     Route: 061
     Dates: start: 20220421
  6. BETAMETHASONE VALERATE [Suspect]
     Active Substance: BETAMETHASONE VALERATE
     Indication: Dermatitis atopic
     Route: 061
     Dates: start: 20190814, end: 20190903
  7. BETAMETHASONE VALERATE [Suspect]
     Active Substance: BETAMETHASONE VALERATE
     Indication: Dermatitis atopic
     Dosage: SOLUTION
     Route: 061
     Dates: start: 20190814, end: 20191029
  8. BETAMETHASONE VALERATE [Suspect]
     Active Substance: BETAMETHASONE VALERATE
     Indication: Dermatitis atopic
     Route: 061
     Dates: start: 20190912, end: 20191126
  9. BETAMETHASONE VALERATE [Suspect]
     Active Substance: BETAMETHASONE VALERATE
     Indication: Dermatitis atopic
     Dosage: SOLUTION
     Route: 061
     Dates: start: 20191106, end: 20191126
  10. BETAMETHASONE VALERATE [Suspect]
     Active Substance: BETAMETHASONE VALERATE
     Indication: Dermatitis atopic
     Route: 061
     Dates: start: 20191207, end: 20200123
  11. BETAMETHASONE VALERATE [Suspect]
     Active Substance: BETAMETHASONE VALERATE
     Indication: Dermatitis atopic
     Dosage: SOLUTION
     Route: 061
     Dates: start: 20191231, end: 20200108
  12. BETAMETHASONE VALERATE [Suspect]
     Active Substance: BETAMETHASONE VALERATE
     Indication: Dermatitis atopic
     Route: 061
     Dates: start: 20200130, end: 20220414
  13. BETAMETHASONE VALERATE [Suspect]
     Active Substance: BETAMETHASONE VALERATE
     Indication: Dermatitis atopic
     Route: 061
     Dates: start: 20220421
  14. BECLOMETHASONE [Concomitant]
     Active Substance: BECLOMETHASONE
     Indication: Asthma
     Dosage: INHALER, DOSE 1 PUFF
     Route: 055
     Dates: start: 1999
  15. DEXAMETHASONE [Concomitant]
     Active Substance: DEXAMETHASONE
     Indication: Blepharitis
     Dosage: TIME INTERVAL: AS NECESSARY: 0.1 %, DOSE 1 DROP
     Route: 047
     Dates: start: 1998
  16. CHLOROCRESOL [Concomitant]
     Active Substance: CHLOROCRESOL
     Indication: Dry skin prophylaxis
     Dosage: DOSE 1 APPLICATION, FREQUENCY 2 TIMES PER DAY AS NECESSARY
     Route: 061
     Dates: start: 201904
  17. HYLO NIGHT [Concomitant]
     Indication: Blepharitis
     Dosage: DOSE 1 DROP
     Route: 047
     Dates: start: 20210426
  18. HYLO FORTE [Concomitant]
     Indication: Blepharitis
     Dosage: TIME INTERVAL: AS NECESSARY
     Route: 047
     Dates: start: 20201111
  19. LYMECYCLINE [Concomitant]
     Active Substance: LYMECYCLINE
     Indication: Blepharitis
     Route: 048
     Dates: start: 20210426
  20. ALBUTEROL [Concomitant]
     Active Substance: ALBUTEROL
     Indication: Asthma
     Dosage: TIME INTERVAL: AS NECESSARY: INHALER, DOSE 1 TO 2 PUFFS
     Route: 055
     Dates: start: 1999

REACTIONS (1)
  - Retinal detachment [Recovered/Resolved]

NARRATIVE: CASE EVENT DATE: 20221104
